FAERS Safety Report 10349221 (Version 2)
Quarter: 2014Q3

REPORT INFORMATION
  Report Type: Report from Study
  Country: MX (occurrence: MX)
  Receive Date: 20140730
  Receipt Date: 20140730
  Transmission Date: 20150326
  Serious: Yes (Death, Other)
  Sender: FDA-Public Use
  Company Number: MX-ORION CORPORATION ORION PHARMA-ENTC2013-0059

PATIENT
  Age: 60 Year
  Sex: Female

DRUGS (4)
  1. STALEVO [Suspect]
     Active Substance: CARBIDOPA\ENTACAPONE\LEVODOPA
     Indication: PARKINSON^S DISEASE
     Dosage: STRENGTH: 150/37.5/200 MG
     Route: 048
     Dates: start: 20120606, end: 20121010
  2. BIPERIDEN [Concomitant]
     Active Substance: BIPERIDEN
     Route: 065
     Dates: start: 2001
  3. CARBIDOPA. [Concomitant]
     Active Substance: CARBIDOPA
     Route: 065
  4. LEVODOPA [Concomitant]
     Active Substance: LEVODOPA
     Route: 065

REACTIONS (6)
  - Disease complication [Fatal]
  - Poisoning [Unknown]
  - Loss of control of legs [Unknown]
  - Parkinson^s disease [Unknown]
  - Product quality issue [Unknown]
  - Renal failure [Unknown]

NARRATIVE: CASE EVENT DATE: 201210
